FAERS Safety Report 9859107 (Version 3)
Quarter: 2014Q2

REPORT INFORMATION
  Report Type: Report from Study
  Country: JP (occurrence: JP)
  Receive Date: 20140131
  Receipt Date: 20140410
  Transmission Date: 20141212
  Serious: Yes (Other)
  Sender: FDA-Public Use
  Company Number: JP-BAYER-2013-143940

PATIENT
  Age: 71 Year
  Sex: Male

DRUGS (4)
  1. REGORAFENIB [Suspect]
     Indication: COLORECTAL CANCER
     Dosage: 160 MG, QD
     Route: 048
     Dates: start: 20131105, end: 20131119
  2. REGORAFENIB [Suspect]
     Indication: COLORECTAL CANCER
     Dosage: 120 MG, QD
     Route: 048
     Dates: start: 20131210, end: 20131223
  3. DEXALTIN [Concomitant]
     Indication: DRUG TOXICITY PROPHYLAXIS
     Dosage: UNK
     Route: 061
  4. MYSER [Concomitant]
     Indication: DRUG TOXICITY PROPHYLAXIS
     Dosage: UNK
     Route: 061

REACTIONS (6)
  - Hepatic function abnormal [Recovered/Resolved]
  - Hypothyroidism [Recovered/Resolved]
  - Platelet count decreased [Recovered/Resolved]
  - Depressed level of consciousness [Recovered/Resolved]
  - Hepatic function abnormal [Recovered/Resolved]
  - Platelet count decreased [Recovered/Resolved]
